FAERS Safety Report 15369698 (Version 2)
Quarter: 2018Q4

REPORT INFORMATION
  Report Type: Spontaneous
  Country: BR (occurrence: BR)
  Receive Date: 20180911
  Receipt Date: 20181004
  Transmission Date: 20190204
  Serious: Yes (Other)
  Sender: FDA-Public Use
  Company Number: BR-ABBVIE-18P-020-2481063-00

PATIENT
  Age: 20 Year
  Sex: Male
  Weight: 70 kg

DRUGS (3)
  1. DEPAKENE [Suspect]
     Active Substance: VALPROIC ACID
     Dosage: PATIENT USED FOR A MONTH AFTER HIS SURGERY
     Route: 065
     Dates: start: 2014, end: 2014
  2. DEPAKENE [Suspect]
     Active Substance: VALPROIC ACID
     Indication: SEIZURE
     Route: 048
     Dates: start: 20180901, end: 201809
  3. OMEPRAZOLE. [Concomitant]
     Active Substance: OMEPRAZOLE
     Indication: PRODUCT USED FOR UNKNOWN INDICATION
     Dosage: 1 TABLET; IN FASTING

REACTIONS (5)
  - Seizure [Recovered/Resolved]
  - Seizure [Recovered/Resolved]
  - Drug-induced liver injury [Recovered/Resolved]
  - Unevaluable event [Unknown]
  - Vomiting [Recovered/Resolved]

NARRATIVE: CASE EVENT DATE: 2014
